FAERS Safety Report 15020261 (Version 1)
Quarter: 2018Q2

REPORT INFORMATION
  Report Type: Spontaneous
  Country: ZA (occurrence: ZA)
  Receive Date: 20180618
  Receipt Date: 20180618
  Transmission Date: 20180711
  Serious: Yes (Hospitalization, Other)
  Sender: FDA-Public Use
  Company Number: ZA-DRREDDYS-SAF/SAF/18/0100224

PATIENT
  Sex: Female

DRUGS (9)
  1. CELEBREX [Suspect]
     Active Substance: CELECOXIB
     Indication: PAIN
     Route: 048
  2. TREPILINE [Suspect]
     Active Substance: AMITRIPTYLINE
     Indication: STRESS
     Route: 048
  3. ZIABETA [Suspect]
     Active Substance: BISOPROLOL FUMARATE\HYDROCHLOROTHIAZIDE
     Indication: HYPERTENSION
     Dosage: 10/6.25MG
     Route: 048
  4. DOPAQUEL [Suspect]
     Active Substance: QUETIAPINE
     Indication: DEPRESSION
     Route: 048
  5. ANGELIQ [Suspect]
     Active Substance: DROSPIRENONE\ESTRADIOL
     Indication: HORMONE REPLACEMENT THERAPY
     Route: 048
  6. ELTROXIN [Suspect]
     Active Substance: LEVOTHYROXINE
     Indication: THYROID DISORDER
     Route: 048
  7. WELLBUTRIN XL [Suspect]
     Active Substance: BUPROPION HYDROCHLORIDE
     Indication: DEPRESSION
     Route: 048
  8. OMEZ [Suspect]
     Active Substance: OMEPRAZOLE
     Indication: ULCER
     Route: 048
  9. STILPANE (ACETAMINOPHEN\CODEINE PHOSPHATE\MEPROBAMATE) [Suspect]
     Active Substance: ACETAMINOPHEN\CODEINE PHOSPHATE\MEPROBAMATE
     Indication: PAIN
     Route: 048

REACTIONS (1)
  - Gastric ulcer [Unknown]
